FAERS Safety Report 8556720 (Version 3)
Quarter: 2012Q4

REPORT INFORMATION
  Report Type: 
  Country: US (occurrence: US)
  Receive Date: 20120510
  Receipt Date: 20121119
  Transmission Date: 20130627
  Serious: Yes (Other)
  Sender: FDA-Public Use
  Company Number: US-ASTRAZENECA-2012SE22557

PATIENT
  Age: 57 Year
  Sex: Female
  Weight: 118.8 kg

DRUGS (21)
  1. SEROQUEL XR [Suspect]
     Indication: BIPOLAR DISORDER
     Route: 048
     Dates: start: 2009
  2. SEROQUEL XR [Suspect]
     Indication: MANIA
     Route: 048
     Dates: start: 2009
  3. SEROQUEL XR [Suspect]
     Indication: BIPOLAR DISORDER
     Route: 048
  4. SEROQUEL XR [Suspect]
     Indication: MANIA
     Route: 048
  5. SEROQUEL XR [Suspect]
     Indication: BIPOLAR DISORDER
     Route: 048
     Dates: end: 201205
  6. SEROQUEL XR [Suspect]
     Indication: MANIA
     Route: 048
     Dates: end: 201205
  7. SEROQUEL XR [Suspect]
     Indication: BIPOLAR DISORDER
     Route: 048
     Dates: start: 201205, end: 201207
  8. SEROQUEL XR [Suspect]
     Indication: MANIA
     Route: 048
     Dates: start: 201205, end: 201207
  9. SEROQUEL XR [Suspect]
     Indication: BIPOLAR DISORDER
     Route: 048
     Dates: start: 201207
  10. SEROQUEL XR [Suspect]
     Indication: MANIA
     Route: 048
     Dates: start: 201207
  11. LITHIUM [Concomitant]
     Indication: BIPOLAR DISORDER
     Dates: start: 2009
  12. LITHIUM [Concomitant]
     Indication: MOOD ALTERED
     Dates: start: 2009
  13. LITHIUM [Concomitant]
     Indication: BIPOLAR DISORDER
     Dates: start: 1996
  14. LITHIUM [Concomitant]
     Indication: MOOD ALTERED
     Dates: start: 1996
  15. LITHIUM [Concomitant]
     Indication: BIPOLAR DISORDER
  16. LITHIUM [Concomitant]
     Indication: MOOD ALTERED
  17. LUVOX [Concomitant]
     Indication: OBSESSIVE-COMPULSIVE DISORDER
     Dates: start: 2011
  18. PREVACID [Concomitant]
     Indication: HIATUS HERNIA
  19. FLUVOXAMINE [Concomitant]
     Indication: OBSESSIVE-COMPULSIVE DISORDER
     Route: 048
     Dates: start: 2011
  20. TAZADONE [Concomitant]
     Indication: SLEEP DISORDER
     Dosage: AT NIGHT
     Route: 048
     Dates: start: 201208
  21. VALIUM [Concomitant]
     Indication: ANXIETY
     Route: 048

REACTIONS (24)
  - Loss of consciousness [Unknown]
  - Amnesia [Unknown]
  - Cellulitis [Unknown]
  - Diarrhoea [Not Recovered/Not Resolved]
  - Withdrawal syndrome [Unknown]
  - Pain [Not Recovered/Not Resolved]
  - Influenza like illness [Not Recovered/Not Resolved]
  - Headache [Not Recovered/Not Resolved]
  - Insomnia [Not Recovered/Not Resolved]
  - Bipolar disorder [Unknown]
  - Abdominal discomfort [Unknown]
  - Malaise [Unknown]
  - Psychotic disorder [Unknown]
  - Feeling abnormal [Unknown]
  - Mania [Unknown]
  - Adverse event [Unknown]
  - Aggression [Unknown]
  - Speech disorder [Unknown]
  - Weight increased [Unknown]
  - Vomiting [Not Recovered/Not Resolved]
  - Hypersomnia [Unknown]
  - Somnolence [Unknown]
  - Drug dose omission [Unknown]
  - Drug ineffective [Unknown]
